FAERS Safety Report 9475690 (Version 1)
Quarter: 2013Q3

REPORT INFORMATION
  Report Type: Spontaneous
  Country: FR (occurrence: FR)
  Receive Date: 20130826
  Receipt Date: 20130826
  Transmission Date: 20140515
  Serious: Yes (Other)
  Sender: FDA-Public Use
  Company Number: PHHY2013FR091248

PATIENT
  Age: 31 Year
  Sex: Male

DRUGS (2)
  1. METHYLPHENIDATE [Suspect]
     Dosage: 120 MG, UNK
     Route: 042
  2. METHYLPHENIDATE [Suspect]
     Dosage: 10 MG TO 30 MG EVERY 04 HOURS
     Route: 042

REACTIONS (10)
  - Dysphoria [Unknown]
  - Drug tolerance [Unknown]
  - Psychotic disorder [Unknown]
  - Paranoia [Unknown]
  - Delusion [Unknown]
  - Drug abuse [Unknown]
  - Euphoric mood [Recovered/Resolved]
  - Feeling abnormal [Unknown]
  - Anxiety [Unknown]
  - Incorrect route of drug administration [Unknown]
